FAERS Safety Report 25943929 (Version 1)
Quarter: 2025Q4

REPORT INFORMATION
  Report Type: Report from Study
  Country: US (occurrence: None)
  Receive Date: 20251021
  Receipt Date: 20251021
  Transmission Date: 20260117
  Serious: Yes (Other)
  Sender: UCB
  Company Number: US-UCBSA-2025065952

PATIENT

DRUGS (1)
  1. FENFLURAMINE [Suspect]
     Active Substance: FENFLURAMINE
     Indication: Lennox-Gastaut syndrome
     Dosage: 5.9 MILLILITER, 2X/DAY (BID)

REACTIONS (1)
  - Tardive dyskinesia [Not Recovered/Not Resolved]
